FAERS Safety Report 7134739-4 (Version None)
Quarter: 2010Q4

REPORT INFORMATION
  Report Type: 
  Country: None (occurrence: None)
  Receive Date: 20101203
  Receipt Date: 20101126
  Transmission Date: 20110411
  Serious: Yes (Death)
  Sender: FDA-Public Use
  Company Number: ES-ROCHE-738916

PATIENT
  Age: 41 Year
  Sex: Male

DRUGS (3)
  1. PEGINTERFERON ALFA-2A [Suspect]
     Indication: HEPATITIS C
     Route: 058
  2. RIBAVIRIN [Suspect]
     Indication: HEPATITIS C
     Route: 048
  3. NEORECORMON [Concomitant]
     Dosage: DOSE: 30000
     Route: 058
     Dates: start: 20100511

REACTIONS (4)
  - ANAEMIA [None]
  - MULTI-ORGAN FAILURE [None]
  - PLATELET COUNT DECREASED [None]
  - RESPIRATORY TRACT INFECTION [None]
